FAERS Safety Report 23710443 (Version 1)
Quarter: 2024Q2

REPORT INFORMATION
  Report Type: Spontaneous
  Country: US (occurrence: None)
  Receive Date: 20240405
  Receipt Date: 20240405
  Transmission Date: 20240715
  Serious: No
  Sender: FDA-Public Use
  Company Number: 2024A066131

PATIENT
  Sex: Male

DRUGS (1)
  1. BYDUREON BCISE [Suspect]
     Active Substance: EXENATIDE

REACTIONS (3)
  - Headache [Unknown]
  - Dizziness [Unknown]
  - Product dose omission issue [Unknown]
